FAERS Safety Report 23472353 (Version 2)
Quarter: 2024Q1

REPORT INFORMATION
  Report Type: Spontaneous
  Country: US (occurrence: US)
  Receive Date: 20240202
  Receipt Date: 20240227
  Transmission Date: 20240410
  Serious: Yes (Other)
  Sender: FDA-Public Use
  Company Number: US-PFIZER INC-PV202400015053

PATIENT
  Age: 88 Year
  Sex: Male
  Weight: 78.912 kg

DRUGS (3)
  1. MEDROL [Suspect]
     Active Substance: METHYLPREDNISOLONE
     Indication: Guillain-Barre syndrome
     Dosage: PER SCHEDULE 6-5-4-3-2-1
     Route: 048
     Dates: start: 202310, end: 2023
  2. MEDROL [Suspect]
     Active Substance: METHYLPREDNISOLONE
     Indication: Myelitis
     Dosage: SECOND COURSE OF ORAL MEDROL DOSE-PAK
     Route: 048
  3. MEDROL [Suspect]
     Active Substance: METHYLPREDNISOLONE
     Indication: Myelitis transverse

REACTIONS (3)
  - Diabetes mellitus [Recovering/Resolving]
  - Off label use [Unknown]
  - Drug effective for unapproved indication [Unknown]

NARRATIVE: CASE EVENT DATE: 20231001
